FAERS Safety Report 11823466 (Version 1)
Quarter: 2015Q4

REPORT INFORMATION
  Report Type: Spontaneous
  Country: US (occurrence: US)
  Receive Date: 20151210
  Receipt Date: 20151210
  Transmission Date: 20160305
  Serious: Yes (Other)
  Sender: FDA-Public Use
  Company Number: PHHY2015US160039

PATIENT
  Age: 72 Year
  Sex: Male

DRUGS (1)
  1. PAZOPANIB [Suspect]
     Active Substance: PAZOPANIB
     Indication: HEREDITARY PAPILLARY RENAL CARCINOMA
     Dosage: UNK UNK, CYCLIC (2 CYCLES)
     Route: 065
     Dates: start: 201303

REACTIONS (2)
  - Acute kidney injury [Unknown]
  - Pancreatitis [Unknown]
